FAERS Safety Report 9510989 (Version 3)
Quarter: 2013Q4

REPORT INFORMATION
  Report Type: Spontaneous
  Country: PL (occurrence: None)
  Receive Date: 20130905
  Receipt Date: 20131220
  Transmission Date: 20140711
  Serious: Yes (Death)
  Sender: FDA-Public Use
  Company Number: 2013P1019069

PATIENT
  Age: 65 Year
  Sex: Female

DRUGS (1)
  1. ZINACEF [Suspect]
     Indication: PNEUMONIA
     Route: 042
     Dates: start: 20130123, end: 20130123

REACTIONS (5)
  - Dizziness [None]
  - Loss of consciousness [None]
  - Anaphylactic shock [None]
  - Cardiac arrest [None]
  - Sudden death [None]
